FAERS Safety Report 10525497 (Version 2)
Quarter: 2015Q1

REPORT INFORMATION
  Report Type: Report from Study
  Country: JP (occurrence: JP)
  Receive Date: 20141017
  Receipt Date: 20150105
  Transmission Date: 20150720
  Serious: Yes (Other)
  Sender: FDA-Public Use
  Company Number: JP-JNJFOC-20141008957

PATIENT
  Age: 78 Year
  Sex: Male
  Weight: 80 kg

DRUGS (7)
  1. LOXOPROFEN [Concomitant]
     Active Substance: LOXOPROFEN
     Indication: INTERVERTEBRAL DISC PROTRUSION
     Route: 048
  2. SOVRIAD [Suspect]
     Active Substance: SIMEPREVIR
     Indication: CHRONIC HEPATITIS C
     Route: 048
     Dates: start: 20140513, end: 20140723
  3. RIBAVIRIN. [Suspect]
     Active Substance: RIBAVIRIN
     Indication: CHRONIC HEPATITIS C
     Route: 048
     Dates: start: 20140702, end: 20140723
  4. RIBAVIRIN. [Suspect]
     Active Substance: RIBAVIRIN
     Indication: CHRONIC HEPATITIS C
     Route: 048
     Dates: start: 20140513, end: 20140701
  5. PARIET [Concomitant]
     Active Substance: RABEPRAZOLE SODIUM
     Route: 048
  6. SPIRIVA [Concomitant]
     Active Substance: TIOTROPIUM BROMIDE MONOHYDRATE
     Route: 055
  7. PEGASYS [Suspect]
     Active Substance: PEGINTERFERON ALFA-2A
     Indication: CHRONIC HEPATITIS C
     Route: 058
     Dates: start: 20140513, end: 20140723

REACTIONS (6)
  - Decreased appetite [Recovering/Resolving]
  - Haemoglobin decreased [Recovered/Resolved]
  - Fatigue [Recovering/Resolving]
  - Neutrophil count decreased [Recovered/Resolved]
  - Platelet count decreased [Recovered/Resolved]
  - Dyspnoea [Recovering/Resolving]

NARRATIVE: CASE EVENT DATE: 20140520
